FAERS Safety Report 12621614 (Version 1)
Quarter: 2016Q3

REPORT INFORMATION
  Report Type: Spontaneous
  Country: US (occurrence: None)
  Receive Date: 20160803
  Receipt Date: 20160803
  Transmission Date: 20161109
  Serious: Yes (Hospitalization)
  Sender: FDA-Public Use
  Company Number: None

PATIENT
  Age: 70 Year
  Sex: Female

DRUGS (6)
  1. FOLIC ACID 400 MCG MAJOR [Suspect]
     Active Substance: FOLIC ACID
     Indication: TRANSPLANT
     Route: 048
     Dates: start: 20130522, end: 201607
  2. FEOSOL 45MG MEDA [Suspect]
     Active Substance: FERROUS SULFATE
     Indication: TRANSPLANT
     Route: 048
     Dates: start: 20130711, end: 201607
  3. VICTOZA [Concomitant]
     Active Substance: LIRAGLUTIDE
  4. MG-OXIDE [Concomitant]
  5. MAG-OXIDE [Concomitant]
  6. SMZ/TMP 400-80MG SUN [Suspect]
     Active Substance: SULFAMETHOXAZOLE\TRIMETHOPRIM
     Indication: TRANSPLANT
     Dosage: EVERY MON, WED, FRI
     Route: 048
     Dates: start: 20131105, end: 201607

REACTIONS (3)
  - Coma [None]
  - Bite [None]
  - Viral infection [None]

NARRATIVE: CASE EVENT DATE: 201607
